FAERS Safety Report 9587844 (Version 1)
Quarter: 2013Q4

REPORT INFORMATION
  Report Type: Spontaneous
  Country: GB (occurrence: GB)
  Receive Date: 20131003
  Receipt Date: 20131003
  Transmission Date: 20140711
  Serious: Yes (Hospitalization)
  Sender: FDA-Public Use
  Company Number: GB-WATSON-2013-17318

PATIENT
  Age: 65 Year
  Sex: Male

DRUGS (3)
  1. DOXORUBICIN (UNKNOWN) [Suspect]
     Indication: PLASMA CELL MYELOMA
     Dosage: 31 MG, UNKNOWN; DOSAGE FORM : LIPOSOME INJECTION, MOST RECENT DOSE: 31 MG
     Route: 042
     Dates: start: 20120924, end: 20121101
  2. DEXAMETHASONE (UNKNOWN) [Suspect]
     Indication: PLASMA CELL MYELOMA
     Dosage: 40 MG, UNKNOWN; DOSAGE FORM: UNSPECIFIED, MOST RECENT DOSE: 40 MG
     Route: 048
     Dates: start: 20120924, end: 20121101
  3. VELCADE [Suspect]
     Indication: PLASMA CELL MYELOMA
     Dosage: 2.3 MG, UNKNOWN; DOSAGE FORM: INJECTION, MOST RECENT DOSE WAS 2.3 MG
     Route: 058
     Dates: start: 20120924, end: 20121105

REACTIONS (1)
  - Sepsis [Recovered/Resolved]
